FAERS Safety Report 6316739-7 (Version None)
Quarter: 2009Q3

REPORT INFORMATION
  Report Type: 
  Country: None (occurrence: None)
  Receive Date: 20090820
  Receipt Date: 20090812
  Transmission Date: 20100115
  Serious: Yes (Hospitalization, Other)
  Sender: FDA-Public Use
  Company Number: CA-ELI_LILLY_AND_COMPANY-CA200706005985

PATIENT
  Sex: Female
  Weight: 64.6 kg

DRUGS (21)
  1. FORTEO [Suspect]
     Indication: OSTEOPOROSIS
     Dosage: 20 UG, DAILY (1/D)
     Route: 058
     Dates: start: 20070519, end: 20071112
  2. FORTEO [Suspect]
     Dosage: 20 UG, DAILY (1/D)
     Route: 058
     Dates: start: 20080108, end: 20081119
  3. AVAPRO [Concomitant]
  4. WELLBUTRIN [Concomitant]
     Dosage: 100 MG, DAILY (1/D)
  5. ASPIRIN [Concomitant]
     Dosage: 325 MG, QOD
  6. SYNTHROID [Concomitant]
     Dosage: 0.075 MG, DAILY (1/D)
  7. CENTRUM [Concomitant]
  8. COMBIVENT [Concomitant]
  9. PULMICORT-100 [Concomitant]
     Dosage: UNK, 2/D
     Route: 055
  10. CALCIUM [Concomitant]
  11. VITAMIN D [Concomitant]
     Dosage: 1000 IU, DAILY (1/D)
  12. CRESTOR [Concomitant]
     Dosage: 5 MG, DAILY (1/D)
  13. ALLOPURINOL [Concomitant]
     Dosage: 5 MG, QOD
  14. LASIX [Concomitant]
     Dosage: 20 MG, DAILY (1/D)
  15. K+10 [Concomitant]
     Dosage: 10 ML, QOD
  16. EPIVAL [Concomitant]
     Dosage: 250 MG, 2/D
  17. CLONAZEPAM [Concomitant]
     Dosage: 0.5 MG, EACH EVENING
  18. AERIUS [Concomitant]
     Dosage: 5 MG, AS NEEDED
  19. SALBUTAMOL [Concomitant]
     Dosage: UNK, 4/D
  20. ADVAIR HFA [Concomitant]
     Dosage: 250 UG, DAILY (1/D)
  21. CALCIUM MAGNESIUM [Concomitant]
     Dosage: UNK, 2/D

REACTIONS (6)
  - BREAST CANCER [None]
  - MUSCLE SPASMS [None]
  - NECK PAIN [None]
  - NON-CARDIAC CHEST PAIN [None]
  - PAIN [None]
  - PARAESTHESIA [None]
